FAERS Safety Report 7519870-3 (Version None)
Quarter: 2011Q2

REPORT INFORMATION
  Report Type: 
  Country: None (occurrence: None)
  Receive Date: 20110524
  Receipt Date: 20110516
  Transmission Date: 20111010
  Serious: Yes (Life-Threatening)
  Sender: FDA-Public Use
  Company Number: 921512

PATIENT
  Age: 2 Year
  Sex: Male

DRUGS (2)
  1. CEFTRIAXONE SODIUM [Suspect]
     Indication: PYREXIA
  2. CEFTRIAXONE SODIUM [Suspect]
     Indication: ACUTE CHEST SYNDROME

REACTIONS (7)
  - UNRESPONSIVE TO STIMULI [None]
  - HAEMATURIA [None]
  - BLOOD PRESSURE DECREASED [None]
  - ANAEMIA [None]
  - DRUG SPECIFIC ANTIBODY PRESENT [None]
  - HAEMOLYSIS [None]
  - ACIDOSIS [None]
